FAERS Safety Report 15630202 (Version 1)
Quarter: 2018Q4

REPORT INFORMATION
  Report Type: Spontaneous
  Country: US (occurrence: US)
  Receive Date: 20181118
  Receipt Date: 20181118
  Transmission Date: 20190205
  Serious: Yes (Congenital Anomaly)
  Sender: FDA-Public Use
  Company Number: PHHY2018US153724

PATIENT

DRUGS (9)
  1. ESTROPIPATE. [Concomitant]
     Active Substance: ESTROPIPATE
     Indication: FOETAL EXPOSURE DURING PREGNANCY
     Route: 064
  2. OXYCODONE [Concomitant]
     Active Substance: OXYCODONE
     Indication: FOETAL EXPOSURE DURING PREGNANCY
     Route: 064
  3. GLYBURIDE. [Concomitant]
     Active Substance: GLYBURIDE
     Indication: FOETAL EXPOSURE DURING PREGNANCY
  4. LEFLUNOMIDE. [Suspect]
     Active Substance: LEFLUNOMIDE
     Indication: FOETAL EXPOSURE DURING PREGNANCY
     Route: 064
  5. ETANERCEPT [Suspect]
     Active Substance: ETANERCEPT
     Indication: FOETAL EXPOSURE DURING PREGNANCY
     Route: 064
  6. LANSOPRAZOLE. [Suspect]
     Active Substance: LANSOPRAZOLE
     Indication: FOETAL EXPOSURE DURING PREGNANCY
     Route: 064
  7. LORAZEPAM. [Suspect]
     Active Substance: LORAZEPAM
     Indication: FOETAL EXPOSURE DURING PREGNANCY
     Route: 064
  8. ROFECOXIB [Concomitant]
     Active Substance: ROFECOXIB
     Indication: FOETAL EXPOSURE DURING PREGNANCY
     Route: 064
  9. ACETYLSALICYLIC ACID [Concomitant]
     Active Substance: ASPIRIN
     Indication: FOETAL EXPOSURE DURING PREGNANCY
     Route: 064

REACTIONS (5)
  - Atrial septal defect [Unknown]
  - Aneurysm [Unknown]
  - Foetal exposure during pregnancy [Unknown]
  - Ventricular hypokinesia [Unknown]
  - Congenital anomaly [Unknown]
